FAERS Safety Report 10986647 (Version 2)
Quarter: 2015Q2

REPORT INFORMATION
  Report Type: Spontaneous
  Country: US (occurrence: US)
  Receive Date: 20150404
  Receipt Date: 20150525
  Transmission Date: 20150821
  Serious: No
  Sender: FDA-Public Use
  Company Number: US-JNJFOC-20140406005

PATIENT
  Age: 85 Year
  Sex: Female
  Weight: 68.04 kg

DRUGS (10)
  1. GABAPENTIN. [Concomitant]
     Active Substance: GABAPENTIN
     Indication: SKIN LESION
     Route: 065
  2. LOVASTATIN. [Concomitant]
     Active Substance: LOVASTATIN
     Route: 065
  3. METFORMIN [Concomitant]
     Active Substance: METFORMIN HYDROCHLORIDE
     Indication: DIABETES MELLITUS
     Route: 065
  4. INSULIN [Concomitant]
     Active Substance: INSULIN NOS
     Indication: DIABETES MELLITUS
     Dosage: 25 UNITS EVERY AM
     Route: 065
  5. ASPIRIN. [Concomitant]
     Active Substance: ASPIRIN
     Route: 065
  6. IMODIUM MULTI-SYMPTOM RELIEF [Suspect]
     Active Substance: DIMETHICONE\LOPERAMIDE HYDROCHLORIDE
     Indication: DIARRHOEA
     Route: 048
     Dates: end: 20140407
  7. FUROSEMIDE. [Concomitant]
     Active Substance: FUROSEMIDE
     Route: 065
  8. LISINOPRIL. [Concomitant]
     Active Substance: LISINOPRIL
     Route: 065
  9. IMODIUM MULTI-SYMPTOM RELIEF [Suspect]
     Active Substance: DIMETHICONE\LOPERAMIDE HYDROCHLORIDE
     Route: 048
  10. IRON [Concomitant]
     Active Substance: IRON
     Indication: NUTRITIONAL SUPPLEMENTATION
     Route: 065

REACTIONS (1)
  - Drug ineffective [Unknown]
